FAERS Safety Report 25104816 (Version 1)
Quarter: 2025Q1

REPORT INFORMATION
  Report Type: Spontaneous
  Country: US (occurrence: US)
  Receive Date: 20250321
  Receipt Date: 20250321
  Transmission Date: 20250409
  Serious: Yes (Other)
  Sender: AMGEN
  Company Number: US-AMGEN-USASP2025053821

PATIENT
  Age: 61 Year
  Sex: Female

DRUGS (11)
  1. RITUXIMAB [Suspect]
     Active Substance: RITUXIMAB
     Indication: Diffuse large B-cell lymphoma
     Route: 065
  2. PREDNISONE [Suspect]
     Active Substance: PREDNISONE
     Indication: Diffuse large B-cell lymphoma
     Route: 065
  3. FLUDARABINE [Concomitant]
     Active Substance: FLUDARABINE PHOSPHATE
     Route: 065
  4. CYTOXAN [Concomitant]
     Active Substance: CYCLOPHOSPHAMIDE
     Route: 065
  5. ALEMTUZUMAB [Concomitant]
     Active Substance: ALEMTUZUMAB
     Route: 065
  6. IBRUTINIB [Concomitant]
     Active Substance: IBRUTINIB
     Route: 065
  7. OFATUMUMAB [Concomitant]
     Active Substance: OFATUMUMAB
     Route: 065
  8. Idelalisib;Ofatumumab [Concomitant]
     Route: 065
  9. OBINUTUZUMAB [Concomitant]
     Active Substance: OBINUTUZUMAB
     Route: 065
  10. VINCRISTINE SULFATE [Concomitant]
     Active Substance: VINCRISTINE SULFATE
     Route: 065
  11. VENETOCLAX [Concomitant]
     Active Substance: VENETOCLAX
     Route: 065

REACTIONS (5)
  - Cytokine release syndrome [Unknown]
  - Immune effector cell-associated neurotoxicity syndrome [Unknown]
  - Therapy partial responder [Unknown]
  - Infection [Unknown]
  - Cytopenia [Unknown]
